FAERS Safety Report 8314317-1 (Version None)
Quarter: 2012Q2

REPORT INFORMATION
  Report Type: 
  Country: None (occurrence: None)
  Receive Date: 20120424
  Receipt Date: 20120413
  Transmission Date: 20120825
  Serious: Yes (Other)
  Sender: FDA-Public Use
  Company Number: A0974390A

PATIENT
  Age: 35 Year
  Sex: Male

DRUGS (9)
  1. PYRAZINAMIDE [Concomitant]
  2. EFAVIRENZ [Suspect]
     Indication: HIV INFECTION
  3. LAMIVUDINE [Suspect]
     Indication: HIV INFECTION
  4. STAVUDINE [Suspect]
     Indication: HIV INFECTION
  5. ISONIAZID [Concomitant]
  6. RIFAMPICIN [Concomitant]
  7. FLUCONAZOLE [Concomitant]
  8. ETHAMBUTOL HYDROCHLORIDE [Concomitant]
  9. COTRIM [Concomitant]

REACTIONS (6)
  - LYMPHADENOPATHY [None]
  - MYCOBACTERIAL INFECTION [None]
  - IMMUNE RECONSTITUTION SYNDROME [None]
  - DISEASE PROGRESSION [None]
  - ACQUIRED IMMUNODEFICIENCY SYNDROME [None]
  - CONDITION AGGRAVATED [None]
